FAERS Safety Report 6600875-1 (Version None)
Quarter: 2010Q1

REPORT INFORMATION
  Report Type: 
  Country: None (occurrence: None)
  Receive Date: 20100225
  Receipt Date: 20100121
  Transmission Date: 20100710
  Serious: No
  Sender: FDA-Public Use
  Company Number: A0835932A

PATIENT
  Age: 40 Year
  Sex: Female

DRUGS (3)
  1. LAMICTAL CD [Suspect]
     Indication: BIPOLAR DISORDER
     Dosage: 25MG PER DAY
     Route: 048
     Dates: start: 20090101, end: 20090101
  2. EFFEXOR [Concomitant]
  3. ZYPREXA [Concomitant]

REACTIONS (2)
  - GLOSSODYNIA [None]
  - TONGUE BLISTERING [None]
